FAERS Safety Report 12432690 (Version 1)
Quarter: 2016Q2

REPORT INFORMATION
  Report Type: Spontaneous
  Country: US (occurrence: None)
  Receive Date: 20160602
  Receipt Date: 20160602
  Transmission Date: 20160815
  Serious: Yes (Hospitalization)
  Sender: FDA-Public Use
  Company Number: None

PATIENT
  Age: 58 Year
  Sex: Female

DRUGS (1)
  1. SPRYCEL [Suspect]
     Active Substance: DASATINIB
     Indication: LEUKAEMIA
     Dosage: 1TAB PO DQ
     Route: 048
     Dates: start: 20130326

REACTIONS (3)
  - Platelet disorder [None]
  - White blood cell disorder [None]
  - Red blood cell abnormality [None]

NARRATIVE: CASE EVENT DATE: 201511
